FAERS Safety Report 23774512 (Version 1)
Quarter: 2024Q2

REPORT INFORMATION
  Report Type: Spontaneous
  Country: KR (occurrence: KR)
  Receive Date: 20240423
  Receipt Date: 20240423
  Transmission Date: 20240716
  Serious: Yes (Other)
  Sender: FDA-Public Use
  Company Number: KR-TASMAN PHARMA, INC.-2024TSM00178

PATIENT
  Sex: Female

DRUGS (2)
  1. CLOZAPINE [Suspect]
     Active Substance: CLOZAPINE
     Dosage: UNK, WITHDRAWN ON DAY 3
  2. CLOZAPINE [Suspect]
     Active Substance: CLOZAPINE
     Dosage: UNK, RESUMED DAY 17

REACTIONS (3)
  - COVID-19 [Recovered/Resolved]
  - Drug-disease interaction [Recovered/Resolved]
  - Neutropenia [Recovered/Resolved]

NARRATIVE: CASE EVENT DATE: 20220101
